FAERS Safety Report 14308073 (Version 1)
Quarter: 2017Q4

REPORT INFORMATION
  Report Type: Spontaneous
  Country: FR (occurrence: FR)
  Receive Date: 20171220
  Receipt Date: 20171220
  Transmission Date: 20180321
  Serious: Yes (Other)
  Sender: FDA-Public Use
  Company Number: FR-TELIGENT, INC-IGIL20170681

PATIENT
  Age: 85 Year
  Sex: Female

DRUGS (7)
  1. RANITIDINE HYDROCHLORIDE. [Suspect]
     Active Substance: RANITIDINE HYDROCHLORIDE
     Indication: CHEMOTHERAPY
     Dosage: UNKNOWN
     Route: 065
  2. SOLU-MEDROL [Suspect]
     Active Substance: METHYLPREDNISOLONE SODIUM SUCCINATE
     Indication: CHEMOTHERAPY
     Dosage: UNKNOWN
     Route: 065
  3. ZOPHREN [Suspect]
     Active Substance: ONDANSETRON
     Dosage: 8 MG
     Route: 065
     Dates: start: 20170421
  4. CARBOPLATIN. [Concomitant]
     Active Substance: CARBOPLATIN
     Indication: PRODUCT USED FOR UNKNOWN INDICATION
     Dosage: UNKNOWN
     Route: 065
  5. TAXOL [Concomitant]
     Active Substance: PACLITAXEL
     Indication: PRODUCT USED FOR UNKNOWN INDICATION
     Dosage: UNKNOWN
     Route: 065
  6. POLARAMINE [Suspect]
     Active Substance: DEXCHLORPHENIRAMINE MALEATE
     Indication: CHEMOTHERAPY
     Dosage: UNKNOWN
     Route: 065
  7. ZOPHREN [Suspect]
     Active Substance: ONDANSETRON
     Indication: CHEMOTHERAPY
     Dosage: 8 MG
     Route: 065
     Dates: start: 201504, end: 201511

REACTIONS (12)
  - Neutrophil count decreased [Unknown]
  - Hypertensive crisis [Unknown]
  - Dizziness [Unknown]
  - Loss of consciousness [Unknown]
  - Cough [Unknown]
  - Somnolence [Unknown]
  - Vertigo [Unknown]
  - Anaphylactic shock [Unknown]
  - Haematuria [Unknown]
  - Malaise [Unknown]
  - Back pain [Unknown]
  - Hypotension [Unknown]

NARRATIVE: CASE EVENT DATE: 201707
